FAERS Safety Report 8559892-7 (Version None)
Quarter: 2012Q3

REPORT INFORMATION
  Report Type: 
  Country: None (occurrence: None)
  Receive Date: 20120802
  Receipt Date: 20120725
  Transmission Date: 20120928
  Serious: Yes (Other)
  Sender: FDA-Public Use
  Company Number: US-BAYER-2012-000670

PATIENT
  Age: 49 Year
  Sex: Female

DRUGS (5)
  1. NEXAVAR [Suspect]
     Indication: HEPATIC NEOPLASM MALIGNANT
     Dosage: 400 MG, BID
     Dates: start: 20120101
  2. MORPHINE SULFATE [Concomitant]
     Indication: PAIN
  3. LEVAQUIN [Concomitant]
     Indication: BACTERIAL INFECTION
     Route: 048
  4. NEXAVAR [Suspect]
     Dosage: 400 MG, BID
  5. NEXAVAR [Suspect]
     Dosage: 200 MG, BID
     Dates: start: 20120101

REACTIONS (11)
  - ABDOMINAL PAIN UPPER [None]
  - CONSTIPATION [None]
  - SKIN EXFOLIATION [None]
  - BACK PAIN [None]
  - PAIN OF SKIN [None]
  - PAIN [None]
  - FATIGUE [None]
  - NAUSEA [None]
  - VOMITING [None]
  - APHAGIA [None]
  - SKIN BURNING SENSATION [None]
